FAERS Safety Report 5084881-7 (Version None)
Quarter: 2006Q3

REPORT INFORMATION
  Report Type: 
  Country: None (occurrence: None)
  Receive Date: 20060815
  Receipt Date: 20060731
  Transmission Date: 20061208
  Serious: Yes (Hospitalization, Other)
  Sender: FDA-Public Use
  Company Number: 2006AL002071

PATIENT
  Age: 65 Year
  Sex: Female

DRUGS (5)
  1. DICLOFENAC [Suspect]
     Dosage: 50 MG; TID
     Dates: start: 20030101
  2. HYDROCORTISONE [Concomitant]
  3. RANITIDINE [Concomitant]
  4. FOLIC ACID [Concomitant]
  5. METHOTREXATE [Concomitant]

REACTIONS (12)
  - ABDOMINAL PAIN LOWER [None]
  - ABDOMINAL SEPSIS [None]
  - COLONIC STENOSIS [None]
  - DIARRHOEA [None]
  - HYPERTENSION [None]
  - LARGE INTESTINE PERFORATION [None]
  - MUCOSAL ULCERATION [None]
  - MYELODYSPLASTIC SYNDROME [None]
  - OSTEOPOROSIS [None]
  - PNEUMOPERITONEUM [None]
  - POST PROCEDURAL COMPLICATION [None]
  - VOMITING [None]
